FAERS Safety Report 17977921 (Version 1)
Quarter: 2020Q3

REPORT INFORMATION
  Report Type: Spontaneous
  Country: CN (occurrence: CN)
  Receive Date: 20200703
  Receipt Date: 20200703
  Transmission Date: 20201103
  Serious: Yes (Hospitalization, Other)
  Sender: FDA-Public Use
  Company Number: CN-GLAXOSMITHKLINE-CN2020APC111853

PATIENT

DRUGS (2)
  1. SERETIDE [Suspect]
     Active Substance: FLUTICASONE PROPIONATE\SALMETEROL XINAFOATE
     Dosage: UNK, 50/100 UG, 60 INHALATIONS
     Route: 055
  2. SERETIDE [Suspect]
     Active Substance: FLUTICASONE PROPIONATE\SALMETEROL XINAFOATE
     Indication: ASTHMA
     Dosage: UNK, BID
     Route: 055
     Dates: start: 201909

REACTIONS (10)
  - Tremor [Recovered/Resolved]
  - Palpitations [Recovered/Resolved]
  - Product use issue [Unknown]
  - Cough [Unknown]
  - Tachypnoea [Recovered/Resolved]
  - Anger [Unknown]
  - Product dose omission issue [Unknown]
  - Agitation [Unknown]
  - Bronchitis [Unknown]
  - Arrhythmia [Recovered/Resolved]

NARRATIVE: CASE EVENT DATE: 202005
